FAERS Safety Report 9615660 (Version 1)
Quarter: 2013Q4

REPORT INFORMATION
  Report Type: Spontaneous
  Country: US (occurrence: US)
  Receive Date: 20131011
  Receipt Date: 20131011
  Transmission Date: 20140711
  Serious: No
  Sender: FDA-Public Use
  Company Number: US-PURDUE-USA-2013-0099477

PATIENT
  Sex: Female

DRUGS (2)
  1. BUTRANS [Suspect]
     Indication: PRODUCT USED FOR UNKNOWN INDICATION
     Dosage: 5 MCG/HR, UNK
     Route: 062
     Dates: end: 201302
  2. BUTRANS [Suspect]
     Dosage: 10 MCG/HR, UNK
     Route: 062
     Dates: start: 201302

REACTIONS (3)
  - Neuralgia [Not Recovered/Not Resolved]
  - Drug effect decreased [Unknown]
  - Influenza like illness [Not Recovered/Not Resolved]
